FAERS Safety Report 8434213-9 (Version None)
Quarter: 2012Q2

REPORT INFORMATION
  Report Type: 
  Country: None (occurrence: None)
  Receive Date: 20120613
  Receipt Date: 20120604
  Transmission Date: 20120825
  Serious: Yes (Other)
  Sender: FDA-Public Use
  Company Number: PHHY2012JP048298

PATIENT
  Age: 69 Year
  Sex: Female

DRUGS (4)
  1. SIMULECT [Concomitant]
     Dosage: 20 MG, UNK
     Route: 042
  2. CELLCEPT [Concomitant]
     Route: 048
  3. CYCLOSPORINE [Suspect]
     Route: 048
  4. DIASTASE [Concomitant]
     Route: 048

REACTIONS (5)
  - NEPHROPATHY TOXIC [None]
  - TOXICITY TO VARIOUS AGENTS [None]
  - COMPLICATIONS OF TRANSPLANTED KIDNEY [None]
  - IMMUNOSUPPRESSANT DRUG LEVEL INCREASED [None]
  - DIABETES MELLITUS [None]
